FAERS Safety Report 8571427-1 (Version None)
Quarter: 2012Q2

REPORT INFORMATION
  Report Type: 
  Country: None (occurrence: None)
  Receive Date: 20120418
  Receipt Date: 20090606
  Transmission Date: 20120825
  Serious: Yes (Other)
  Sender: FDA-Public Use
  Company Number: PHEH2008US10750

PATIENT
  Age: 59 Year
  Sex: Female

DRUGS (3)
  1. VITAMINS (NO INGREDIENTS/SUBSTANCES [Concomitant]
  2. DIOVAN HCT [Suspect]
     Indication: HYPERTENSION
     Dosage: 80 VAL/12.5 HCT MG, QD, ORAL;
     Dates: start: 20060821
  3. DIOVAN HCT [Suspect]
     Indication: HYPERTENSION
     Dosage: 80 VAL/12.5 HCT MG, QD, ORAL;
     Dates: start: 20000101

REACTIONS (3)
  - PALPITATIONS [None]
  - FATIGUE [None]
  - DIZZINESS [None]
